FAERS Safety Report 15089400 (Version 1)
Quarter: 2018Q2

REPORT INFORMATION
  Report Type: Spontaneous
  Country: US (occurrence: US)
  Receive Date: 20180629
  Receipt Date: 20180629
  Transmission Date: 20180711
  Serious: Yes (Other)
  Sender: FDA-Public Use
  Company Number: US-ACCORD-041249

PATIENT
  Sex: Female
  Weight: 53 kg

DRUGS (9)
  1. HYDROXYCHLOROQUINE [Concomitant]
     Active Substance: HYDROXYCHLOROQUINE
     Dosage: LAST DOSE RECEIVED IN 2016.?GESTATION AGE AT EXPOSURE: 34 WEEKS AND EXPOSED IN 1ST, 2ND AND 3RD TRI
     Dates: start: 201507
  2. IMURAN [Concomitant]
     Active Substance: AZATHIOPRINE
     Dates: start: 20160602
  3. AZATHIOPRINE. [Concomitant]
     Active Substance: AZATHIOPRINE
     Indication: SYSTEMIC LUPUS ERYTHEMATOSUS
     Dosage: GESTATION AGE AT LAST EXPOS. 34 WKS,?RECEIVED 150 MG DAILY ON 02-JUN-2016
     Dates: start: 20160112
  4. CELLCEPT [Suspect]
     Active Substance: MYCOPHENOLATE MOFETIL\MYCOPHENOLATE MOFETIL HYDROCHLORIDE
     Indication: LUPUS NEPHRITIS
  5. CANNABIS SATIVA [Concomitant]
     Active Substance: CANNABIS SATIVA SUBSP. SATIVA FLOWERING TOP
     Dosage: USE DAILY PATIENT PREFERENCE
  6. MYCOPHENOLATE MOFETIL ACCORD [Suspect]
     Active Substance: MYCOPHENOLATE MOFETIL
     Indication: LUPUS NEPHRITIS
     Route: 048
     Dates: start: 20150720, end: 20160506
  7. DOXYLAMINE/PYRIDOXINE [Concomitant]
     Indication: NAUSEA
     Dosage: 10 MG/10 MG, 2 TABS IN EVENING
     Dates: start: 20160602, end: 2016
  8. ASCORBIC ACID/BIOTIN/MINERALS NOS/NICOTINIC ACID/RETINOL/TOCOPHEROL/VITAMIN B NOS/VITAMIN D NOS [Concomitant]
     Indication: PREGNANCY
     Dosage: 1 TAB
     Dates: start: 201605
  9. PREDNISONE. [Concomitant]
     Active Substance: PREDNISONE
     Dosage: RECEIVED 30 MG DAILY FROM 01-DEC-2016 IN 3RD TRIMEST, ?GESTATION AGE AT FIRST EXPOS. 33 WKS, 2 DAYS
     Dates: start: 201507

REACTIONS (1)
  - Maternal exposure during pregnancy [Unknown]
